FAERS Safety Report 13193179 (Version 2)
Quarter: 2017Q1

REPORT INFORMATION
  Report Type: Spontaneous
  Country: US (occurrence: US)
  Receive Date: 20170207
  Receipt Date: 20170228
  Transmission Date: 20170428
  Serious: Yes (Other)
  Sender: FDA-Public Use
  Company Number: US-AKORN PHARMACEUTICALS-2017AKN00118

PATIENT
  Sex: Male

DRUGS (2)
  1. MYORISAN [Suspect]
     Active Substance: ISOTRETINOIN
     Indication: ACNE
     Dosage: 60 MG, 1X/DAY
     Route: 048
     Dates: start: 20160727, end: 20170124
  2. PREDNISONE. [Concomitant]
     Active Substance: PREDNISONE

REACTIONS (3)
  - Abnormal behaviour [Unknown]
  - Educational problem [Unknown]
  - Truancy [Unknown]
